FAERS Safety Report 9356926 (Version 2)
Quarter: 2013Q3

REPORT INFORMATION
  Report Type: Spontaneous
  Country: US (occurrence: US)
  Receive Date: 20130620
  Receipt Date: 20130718
  Transmission Date: 20140515
  Serious: No
  Sender: FDA-Public Use
  Company Number: US-009507513-1306USA007074

PATIENT
  Age: 30 Year
  Sex: Female
  Weight: 108.39 kg

DRUGS (2)
  1. SAPHRIS [Suspect]
     Indication: PERSONALITY DISORDER
     Dosage: 5 MG, BID
     Route: 048
     Dates: start: 20130517, end: 20130611
  2. SAPHRIS [Suspect]
     Dosage: 10 MG, BID
     Route: 060
     Dates: start: 20130517, end: 20130611

REACTIONS (4)
  - Dysgeusia [Not Recovered/Not Resolved]
  - Hypoaesthesia oral [Not Recovered/Not Resolved]
  - Product quality issue [Unknown]
  - Incorrect route of drug administration [Unknown]
